FAERS Safety Report 8844996 (Version 1)
Quarter: 2012Q4

REPORT INFORMATION
  Report Type: Spontaneous
  Country: US (occurrence: None)
  Receive Date: 20120925
  Receipt Date: 20120925
  Transmission Date: 20130627
  Serious: Yes (Life-Threatening, Other)
  Sender: FDA-Public Use
  Company Number: RB-33508-2011

PATIENT
  Age: 24 Year
  Sex: Female

DRUGS (2)
  1. SUBOXONE [Suspect]
     Indication: PRODUCT USED FOR UNKNOWN INDICATION
     Dosage: (Unknown dosing and regimen details Sublingual)
     Route: 060
  2. SUBOXONE [Suspect]

REACTIONS (9)
  - Hypersensitivity [None]
  - Pharyngeal oedema [None]
  - Salivary gland enlargement [None]
  - Dyspnoea [None]
  - Urticaria [None]
  - Wheezing [None]
  - Aphonia [None]
  - Chest pain [None]
  - Asthma [None]
